FAERS Safety Report 6165198-6 (Version None)
Quarter: 2009Q2

REPORT INFORMATION
  Report Type: 
  Country: None (occurrence: None)
  Receive Date: 20090421
  Receipt Date: 20090421
  Transmission Date: 20091009
  Serious: Yes (Other)
  Sender: FDA-Public Use
  Company Number: None

PATIENT
  Age: 42 Year
  Sex: Female
  Weight: 73.0291 kg

DRUGS (1)
  1. OXYCODONE AND ACETAMINOPHEN [Suspect]
     Indication: PAIN MANAGEMENT
     Dosage: 1 TABLET 4-6 HRS PO
     Route: 048
     Dates: start: 20090414, end: 20090419

REACTIONS (4)
  - INADEQUATE ANALGESIA [None]
  - PARAESTHESIA [None]
  - PRODUCT QUALITY ISSUE [None]
  - SOMNOLENCE [None]
